FAERS Safety Report 6151882-7 (Version None)
Quarter: 2009Q2

REPORT INFORMATION
  Report Type: 
  Country: None (occurrence: None)
  Receive Date: 20090410
  Receipt Date: 20080410
  Transmission Date: 20091009
  Serious: Yes (Other)
  Sender: FDA-Public Use
  Company Number: US-ASTRAZENECA-2007UW21499

PATIENT
  Age: 519 Month
  Sex: Female
  Weight: 79.4 kg

DRUGS (15)
  1. SEROQUEL [Suspect]
     Indication: ANXIETY
     Dosage: 100MG - 200MG
     Route: 048
     Dates: start: 20030101, end: 20061101
  2. SEROQUEL [Suspect]
     Indication: MAJOR DEPRESSION
     Dosage: 100MG - 200MG
     Route: 048
     Dates: start: 20030101, end: 20061101
  3. EFFEXOR XR [Concomitant]
  4. LISINOPRIL [Concomitant]
  5. METFORMIN HCL [Concomitant]
  6. LIPITOR [Concomitant]
  7. SKELAXIN [Concomitant]
  8. ZITHROMAX [Concomitant]
  9. AUGMENTIN '125' [Concomitant]
  10. IBUPROFEN [Concomitant]
  11. DEMEROL [Concomitant]
  12. ATIVAN [Concomitant]
  13. XANAX [Concomitant]
  14. AVANDIA [Concomitant]
  15. ASPIRIN [Concomitant]

REACTIONS (34)
  - ABDOMINAL PAIN UPPER [None]
  - ANGINA PECTORIS [None]
  - ARTHRALGIA [None]
  - ASTHENIA [None]
  - BACK PAIN [None]
  - CHEST PAIN [None]
  - COUGH [None]
  - DEHYDRATION [None]
  - DIABETIC NEUROPATHY [None]
  - DIARRHOEA [None]
  - DYSPEPSIA [None]
  - DYSPNOEA [None]
  - DYSURIA [None]
  - EROSIVE DUODENITIS [None]
  - FLATULENCE [None]
  - HAEMATEMESIS [None]
  - HAEMORRHAGIC EROSIVE GASTRITIS [None]
  - HEADACHE [None]
  - INTERMITTENT EXPLOSIVE DISORDER [None]
  - MUSCLE SPASMS [None]
  - MUSCULOSKELETAL PAIN [None]
  - NAUSEA [None]
  - OEDEMA [None]
  - PAIN IN EXTREMITY [None]
  - PARAESTHESIA [None]
  - POLYDIPSIA [None]
  - POLYURIA [None]
  - PRODUCTIVE COUGH [None]
  - PYREXIA [None]
  - REFLUX OESOPHAGITIS [None]
  - SINUSITIS [None]
  - SLEEP DISORDER [None]
  - TYPE 2 DIABETES MELLITUS [None]
  - VOMITING [None]
